FAERS Safety Report 5400931-X (Version None)
Quarter: 2007Q3

REPORT INFORMATION
  Report Type: 
  Country: None (occurrence: None)
  Receive Date: 20070730
  Receipt Date: 20070405
  Transmission Date: 20080115
  Serious: No
  Sender: FDA-Public Use
  Company Number: A0646108A

PATIENT
  Age: 9 Week
  Sex: Female

DRUGS (1)
  1. ZANTAC 150 [Suspect]
     Indication: DRUG USE FOR UNKNOWN INDICATION
     Dosage: .8ML TWICE PER DAY
     Route: 048
     Dates: start: 20070208

REACTIONS (2)
  - ERYTHEMA OF EYELID [None]
  - PHARMACEUTICAL PRODUCT COMPLAINT [None]
